FAERS Safety Report 14485540 (Version 3)
Quarter: 2019Q3

REPORT INFORMATION
  Report Type: Spontaneous
  Country: US (occurrence: US)
  Receive Date: 20180205
  Receipt Date: 20190912
  Transmission Date: 20191004
  Serious: Yes (Other)
  Sender: FDA-Public Use
  Company Number: US-BAYER-2018-017771

PATIENT
  Age: 51 Year
  Sex: Female

DRUGS (6)
  1. TINZAPARIN [Concomitant]
     Active Substance: TINZAPARIN
     Dosage: UNK
  2. ESTRADIOL. [Suspect]
     Active Substance: ESTRADIOL
     Dosage: UNK
  3. ACETYLSALICYLIC ACID({=100 MG) [Suspect]
     Active Substance: ASPIRIN
  4. PARACETAMOL [Suspect]
     Active Substance: ACETAMINOPHEN
     Dosage: UNK
  5. CLOBETASOL PROPIONATE. [Concomitant]
     Active Substance: CLOBETASOL PROPIONATE
     Dosage: UNK
     Route: 061
  6. PROGESTERONE. [Concomitant]
     Active Substance: PROGESTERONE
     Dosage: UNK

REACTIONS (7)
  - Erythema nodosum [Unknown]
  - Joint stiffness [Unknown]
  - Off label use [None]
  - Abortion spontaneous [None]
  - Maternal exposure during pregnancy [None]
  - Product use in unapproved indication [None]
  - Rash [Unknown]
